FAERS Safety Report 12425191 (Version 2)
Quarter: 2016Q2

REPORT INFORMATION
  Report Type: Spontaneous
  Country: US (occurrence: US)
  Receive Date: 20160601
  Receipt Date: 20160615
  Transmission Date: 20160815
  Serious: Yes (Hospitalization)
  Sender: FDA-Public Use
  Company Number: US-ACTELION-A-US2016-136808

PATIENT
  Age: 59 Year
  Sex: Female

DRUGS (13)
  1. OPSUMIT [Suspect]
     Active Substance: MACITENTAN
     Indication: PULMONARY ARTERIAL HYPERTENSION
     Dosage: 10 MG, QD
     Route: 048
     Dates: start: 20160107
  2. LEVOTHYROXINE. [Concomitant]
     Active Substance: LEVOTHYROXINE
  3. SILDENAFIL. [Concomitant]
     Active Substance: SILDENAFIL
  4. TORSEMIDE. [Concomitant]
     Active Substance: TORSEMIDE
  5. PROTONIX [Concomitant]
     Active Substance: PANTOPRAZOLE SODIUM
  6. ARAVA [Concomitant]
     Active Substance: LEFLUNOMIDE
  7. LAMICTAL [Concomitant]
     Active Substance: LAMOTRIGINE
  8. CYMBALTA [Concomitant]
     Active Substance: DULOXETINE HYDROCHLORIDE
  9. PREDNISONE. [Concomitant]
     Active Substance: PREDNISONE
  10. POTASSIUM [Concomitant]
     Active Substance: POTASSIUM
  11. SPIRONOLACTON [Concomitant]
     Active Substance: SPIRONOLACTONE
  12. FOLIC ACID. [Concomitant]
     Active Substance: FOLIC ACID
  13. TYVASO [Concomitant]
     Active Substance: TREPROSTINIL
     Dosage: 6 BREATHS, QID

REACTIONS (3)
  - Diarrhoea [Unknown]
  - Clostridium difficile infection [Recovering/Resolving]
  - Dyspnoea [Unknown]

NARRATIVE: CASE EVENT DATE: 20160501
